FAERS Safety Report 4752568-3 (Version None)
Quarter: 2005Q3

REPORT INFORMATION
  Report Type: 
  Country: None (occurrence: None)
  Receive Date: 20050823
  Receipt Date: 20050819
  Transmission Date: 20060218
  Serious: Yes (Death, Hospitalization, Other)
  Sender: FDA-Public Use
  Company Number: 215054

PATIENT
  Age: 66 Year
  Sex: Male

DRUGS (2)
  1. EFALIZUMAB (EFALIZUMAB) PWDR + SOLVENT, INJECTION SOLN, 125MG [Suspect]
     Indication: PSORIASIS
     Dosage: 1 MG/KG , 1 /WEEK, SUBCUTANEOUS
     Route: 058
     Dates: start: 20050419, end: 20050526
  2. ENALAPRIL MALEATE [Concomitant]

REACTIONS (17)
  - ABNORMAL BEHAVIOUR [None]
  - ACUTE PRERENAL FAILURE [None]
  - AGITATION [None]
  - ARRHYTHMIA [None]
  - DIALYSIS [None]
  - DIFFICULTY IN WALKING [None]
  - ENCEPHALITIS [None]
  - GENERAL PHYSICAL HEALTH DETERIORATION [None]
  - HAEMODYNAMIC INSTABILITY [None]
  - INFLUENZA LIKE ILLNESS [None]
  - LYMPHADENOPATHY [None]
  - MENINGITIS [None]
  - MYALGIA [None]
  - PNEUMONIA [None]
  - PSYCHOMOTOR HYPERACTIVITY [None]
  - RENAL FAILURE [None]
  - SEPSIS [None]
